FAERS Safety Report 9083985 (Version 3)
Quarter: 2013Q1

REPORT INFORMATION
  Report Type: Report from Study
  Country: CH (occurrence: CH)
  Receive Date: 20130130
  Receipt Date: 20130313
  Transmission Date: 20140127
  Serious: Yes (Other)
  Sender: FDA-Public Use
  Company Number: CH-GENZYME-CLOF-1002494

PATIENT
  Age: 28 Year
  Sex: Female
  Weight: 51 kg

DRUGS (4)
  1. EVOLTRA [Suspect]
     Indication: ACUTE MYELOID LEUKAEMIA
     Dosage: 16 MG, UNK (ARM B; INDUCTION PHASE I); IN 1 HR
     Route: 042
     Dates: start: 20130112, end: 20130116
  2. CYTARABINE [Suspect]
     Indication: ACUTE MYELOID LEUKAEMIA
     Dosage: 320 MG, UNK (IN 18HRS)
     Route: 042
     Dates: start: 20130112, end: 20130118
  3. IDARUBICIN [Suspect]
     Indication: ACUTE MYELOID LEUKAEMIA
     Dosage: 19 MG, UNK (IN 3 HRS)
     Route: 042
     Dates: start: 20130112, end: 20130114
  4. PARACETAMOL [Suspect]
     Indication: PAIN
     Dosage: UNK (3X1G)
     Route: 048
     Dates: start: 20130108

REACTIONS (1)
  - Neutropenic colitis [Recovered/Resolved]
